FAERS Safety Report 24582597 (Version 1)
Quarter: 2024Q4

REPORT INFORMATION
  Report Type: Spontaneous
  Country: US (occurrence: US)
  Receive Date: 20241106
  Receipt Date: 20241106
  Transmission Date: 20250115
  Serious: Yes (Other)
  Sender: ASTELLAS
  Company Number: US-ASTELLAS-2024-AER-016352

PATIENT
  Age: 81 Year
  Sex: Male

DRUGS (1)
  1. IZERVAY [Suspect]
     Active Substance: AVACINCAPTAD PEGOL SODIUM
     Indication: Dry age-related macular degeneration
     Dosage: 20 MG/ML IN A SINGLE-DOSE (EACH EYE - ONCE MONTHLY)
     Dates: start: 2024, end: 202410

REACTIONS (2)
  - Dry age-related macular degeneration [Unknown]
  - Condition aggravated [Unknown]
